FAERS Safety Report 9093103 (Version 1)
Quarter: 2013Q3

REPORT INFORMATION
  Report Type: Spontaneous
  Country: US (occurrence: None)
  Receive Date: 20130213
  Receipt Date: 20130213
  Transmission Date: 20140515
  Serious: Yes (Hospitalization)
  Sender: FDA-Public Use
  Company Number: None

PATIENT
  Age: 40 Year
  Sex: Male
  Weight: 87.09 kg

DRUGS (7)
  1. PAZOPANIB [Suspect]
     Indication: NON-SMALL CELL LUNG CANCER METASTATIC
     Route: 048
     Dates: start: 20131205, end: 20130128
  2. OXYCONTIN [Concomitant]
  3. OXYCODONE [Concomitant]
  4. MIRALAX [Concomitant]
  5. ZANTAC [Concomitant]
  6. COMPAZINE [Concomitant]
  7. LISINOPRIL [Concomitant]

REACTIONS (2)
  - Bile duct obstruction [None]
  - Bile duct stenosis [None]
